FAERS Safety Report 8230366-6 (Version None)
Quarter: 2012Q1

REPORT INFORMATION
  Report Type: 
  Country: None (occurrence: None)
  Receive Date: 20120322
  Receipt Date: 20120322
  Transmission Date: 20120608
  Serious: Yes (Other)
  Sender: FDA-Public Use
  Company Number: None

PATIENT
  Age: 76 Year
  Sex: Female

DRUGS (1)
  1. SUTENT [Suspect]
     Indication: HEPATIC NEOPLASM MALIGNANT
     Dosage: 25MG QD PO (ORAL)
     Route: 048
     Dates: start: 20111220, end: 20120309

REACTIONS (4)
  - DISTURBANCE IN ATTENTION [None]
  - CONFUSIONAL STATE [None]
  - DYSGRAPHIA [None]
  - MEMORY IMPAIRMENT [None]
